FAERS Safety Report 5475843-6 (Version None)
Quarter: 2007Q4

REPORT INFORMATION
  Report Type: 
  Country: None (occurrence: None)
  Receive Date: 20071003
  Receipt Date: 20070923
  Transmission Date: 20080405
  Serious: Yes (Other)
  Sender: FDA-Public Use
  Company Number: US-AMGEN-STX244691

PATIENT
  Sex: Female

DRUGS (1)
  1. ENBREL [Suspect]
     Indication: PSORIATIC ARTHROPATHY
     Route: 058
     Dates: end: 20070906

REACTIONS (6)
  - CANDIDIASIS [None]
  - NAUSEA [None]
  - NEUROENDOCRINE TUMOUR [None]
  - REFLUX OESOPHAGITIS [None]
  - TINNITUS [None]
  - VOMITING [None]
